FAERS Safety Report 19773505 (Version 3)
Quarter: 2021Q4

REPORT INFORMATION
  Report Type: Spontaneous
  Country: JP (occurrence: JP)
  Receive Date: 20210901
  Receipt Date: 20211227
  Transmission Date: 20220303
  Serious: Yes (Hospitalization, Other)
  Sender: FDA-Public Use
  Company Number: JP-NOVARTISPH-NVSJ2021JP012611

PATIENT
  Age: 80 Year
  Sex: Male
  Weight: 46 kg

DRUGS (2)
  1. ENTRESTO [Suspect]
     Active Substance: SACUBITRIL\VALSARTAN
     Indication: Cardiac failure chronic
     Dosage: 200 MG, BID
     Route: 048
     Dates: start: 20201105
  2. AZELNIDIPINE [Concomitant]
     Active Substance: AZELNIDIPINE
     Indication: Hypertension
     Dosage: 16 MG, QD
     Route: 048
     Dates: start: 20200604

REACTIONS (4)
  - Decreased appetite [Recovering/Resolving]
  - Oedema peripheral [Recovering/Resolving]
  - Cancer pain [Unknown]
  - Lymphocyte count decreased [Unknown]

NARRATIVE: CASE EVENT DATE: 20210812
